FAERS Safety Report 15751520 (Version 1)
Quarter: 2018Q4

REPORT INFORMATION
  Report Type: Spontaneous
  Country: US (occurrence: US)
  Receive Date: 20181221
  Receipt Date: 20181221
  Transmission Date: 20190205
  Serious: Yes (Other)
  Sender: FDA-Public Use
  Company Number: PHHY2018US187660

PATIENT
  Sex: Female

DRUGS (1)
  1. SYSTANE BALANCE [Suspect]
     Active Substance: PROPYLENE GLYCOL
     Indication: PRODUCT USED FOR UNKNOWN INDICATION
     Dosage: UNK
     Route: 047
     Dates: start: 20181210, end: 20181212

REACTIONS (7)
  - Dizziness [Unknown]
  - Road traffic accident [Unknown]
  - Feeling abnormal [Unknown]
  - Eye pain [Unknown]
  - Product quality issue [Unknown]
  - Device dislocation [Unknown]
  - Malaise [Unknown]
